FAERS Safety Report 25262253 (Version 1)
Quarter: 2025Q2

REPORT INFORMATION
  Report Type: Report from Study
  Country: CO (occurrence: CO)
  Receive Date: 20250502
  Receipt Date: 20250502
  Transmission Date: 20250717
  Serious: Yes (Other)
  Sender: ABBVIE
  Company Number: CO-ABBVIE-6253754

PATIENT
  Sex: Male

DRUGS (2)
  1. BOTOX [Suspect]
     Active Substance: ONABOTULINUMTOXINA
     Indication: Muscle spasticity
     Route: 030
     Dates: start: 20241008, end: 20241008
  2. DIAZEPAM [Concomitant]
     Active Substance: DIAZEPAM
     Indication: Muscle spasticity
     Route: 048

REACTIONS (2)
  - Epilepsy [Not Recovered/Not Resolved]
  - Muscle spasticity [Not Recovered/Not Resolved]
